FAERS Safety Report 16115576 (Version 2)
Quarter: 2019Q1

REPORT INFORMATION
  Report Type: Spontaneous
  Country: US (occurrence: US)
  Receive Date: 20190325
  Receipt Date: 20190331
  Transmission Date: 20190418
  Serious: No
  Sender: FDA-Public Use
  Company Number: US-ELI_LILLY_AND_COMPANY-US201903010994

PATIENT
  Sex: Female
  Weight: 90.7 kg

DRUGS (3)
  1. REMODULIN [Suspect]
     Active Substance: TREPROSTINIL
     Indication: PULMONARY ARTERIAL HYPERTENSION
     Dosage: 16 UG/KG/MIN, CONTINUOUS(2.5 MG/ML)
     Route: 058
     Dates: start: 20190118
  2. LETAIRIS [Concomitant]
     Active Substance: AMBRISENTAN
     Indication: PRODUCT USED FOR UNKNOWN INDICATION
  3. TADALAFIL. [Suspect]
     Active Substance: TADALAFIL
     Indication: PULMONARY ARTERIAL HYPERTENSION
     Dosage: UNK, UNKNOWN
     Route: 065

REACTIONS (7)
  - Rash macular [Unknown]
  - Mouth swelling [Unknown]
  - Pruritus [Unknown]
  - Urticaria [Unknown]
  - Lip swelling [Unknown]
  - Eye disorder [Unknown]
  - Rash [Unknown]
